FAERS Safety Report 7201052-6 (Version None)
Quarter: 2010Q4

REPORT INFORMATION
  Report Type: 
  Country: None (occurrence: None)
  Receive Date: 20101229
  Receipt Date: 20101217
  Transmission Date: 20110411
  Serious: Yes (Death)
  Sender: FDA-Public Use
  Company Number: US-BIOGENIDEC-2010BI044329

PATIENT
  Age: 46 Year
  Sex: Female

DRUGS (1)
  1. TYSABRI [Suspect]
     Indication: MULTIPLE SCLEROSIS
     Route: 042
     Dates: start: 20070731, end: 20101203

REACTIONS (5)
  - CARDIAC ARREST [None]
  - DEPRESSION [None]
  - HERPES VIRUS INFECTION [None]
  - PAIN [None]
  - URINARY TRACT INFECTION [None]
